FAERS Safety Report 9026460 (Version 1)
Quarter: 2013Q1

REPORT INFORMATION
  Report Type: Spontaneous
  Country: JP (occurrence: JP)
  Receive Date: 20130123
  Receipt Date: 20130123
  Transmission Date: 20140127
  Serious: No
  Sender: FDA-Public Use
  Company Number: JP-JNJFOC-20130108255

PATIENT
  Age: 7 Decade
  Sex: 0

DRUGS (1)
  1. ONEDURO [Suspect]
     Indication: PAIN
     Dosage: 12.5UG.HR AS PER NECESSARY
     Route: 062
     Dates: start: 20130107

REACTIONS (2)
  - Off label use [Unknown]
  - Inappropriate schedule of drug administration [Unknown]
